FAERS Safety Report 13451024 (Version 2)
Quarter: 2017Q2

REPORT INFORMATION
  Report Type: Spontaneous
  Country: US (occurrence: US)
  Receive Date: 20170418
  Receipt Date: 20170627
  Transmission Date: 20170830
  Serious: No
  Sender: FDA-Public Use
  Company Number: US-TEVA-760133ACC

PATIENT
  Age: 29 Year
  Sex: Female
  Weight: 93.52 kg

DRUGS (3)
  1. FLONASE [Concomitant]
     Active Substance: FLUTICASONE PROPIONATE
  2. PARAGARD T 380A [Suspect]
     Active Substance: COPPER
     Indication: CONTRACEPTION
     Dates: start: 20161021, end: 20170407
  3. PRENATAL VITAMINS [Concomitant]
     Active Substance: VITAMINS

REACTIONS (5)
  - Menorrhagia [Recovered/Resolved]
  - Device expulsion [Recovered/Resolved]
  - Vaginal haemorrhage [Recovered/Resolved]
  - Muscle spasms [Recovered/Resolved]
  - Coital bleeding [Recovered/Resolved]

NARRATIVE: CASE EVENT DATE: 20170207
